FAERS Safety Report 5084590-4 (Version None)
Quarter: 2006Q3

REPORT INFORMATION
  Report Type: 
  Country: None (occurrence: None)
  Receive Date: 20060815
  Receipt Date: 20060802
  Transmission Date: 20061208
  Serious: Yes (Death, Life-Threatening, Hospitalization)
  Sender: FDA-Public Use
  Company Number: HQWYE697525JUN04

PATIENT
  Age: 70 Year
  Sex: Female
  Weight: 63.9 kg

DRUGS (3)
  1. MYLOTARG [Suspect]
     Indication: ACUTE MYELOID LEUKAEMIA
     Dosage: 16 MG IV EVERY 14 DAYS, INTRAVENOUS
     Route: 042
     Dates: start: 20030317, end: 20030412
  2. GLUCOTROL [Concomitant]
  3. IMMUNE SERUM GLOBULIN (HUMAN) (IMMUNE SERUM GLOBULIN (HUMAN) [Concomitant]

REACTIONS (8)
  - BACTERIAL SEPSIS [None]
  - DISEASE PROGRESSION [None]
  - DYSPNOEA [None]
  - FEBRILE NEUTROPENIA [None]
  - HAEMOGLOBIN DECREASED [None]
  - HYPOTENSION [None]
  - STAPHYLOCOCCAL INFECTION [None]
  - THROMBOCYTOPENIA [None]
